FAERS Safety Report 6697281-0 (Version None)
Quarter: 2010Q2

REPORT INFORMATION
  Report Type: 
  Country: None (occurrence: None)
  Receive Date: 20100426
  Receipt Date: 20100414
  Transmission Date: 20101027
  Serious: Yes (Hospitalization, Other)
  Sender: FDA-Public Use
  Company Number: US-ELI_LILLY_AND_COMPANY-US201004006080

PATIENT
  Sex: Female

DRUGS (6)
  1. ZYPREXA [Suspect]
     Indication: BIPOLAR DISORDER
     Dosage: 30 MG, UNK
  2. ZYPREXA [Suspect]
     Dosage: 40 MG, UNK
  3. DIGOXIN [Concomitant]
     Indication: CARDIAC DISORDER
  4. CARVELOL [Concomitant]
     Indication: CARDIAC DISORDER
  5. GLIPIZIDE [Concomitant]
     Indication: CARDIAC DISORDER
  6. LITHIUM [Concomitant]
     Dosage: 900 MG, DAILY (1/D)

REACTIONS (10)
  - ABDOMINAL PAIN UPPER [None]
  - ABNORMAL BEHAVIOUR [None]
  - CARDIAC FAILURE CONGESTIVE [None]
  - DIABETES MELLITUS [None]
  - MENTAL DISORDER [None]
  - OVERDOSE [None]
  - PNEUMONIA [None]
  - POSTURING [None]
  - TREMOR [None]
  - WEIGHT DECREASED [None]
